FAERS Safety Report 9695646 (Version 1)
Quarter: 2013Q4

REPORT INFORMATION
  Report Type: Spontaneous
  Country: US (occurrence: None)
  Receive Date: 20131118
  Receipt Date: 20131118
  Transmission Date: 20140711
  Serious: No
  Sender: FDA-Public Use
  Company Number: None

PATIENT
  Age: 90 Year
  Sex: Male
  Weight: 77.57 kg

DRUGS (2)
  1. ZENPEP [Suspect]
     Indication: PANCREATOLITHIASIS
     Dates: start: 20130506, end: 20130520
  2. CREON [Suspect]
     Indication: PANCREATIC DUCT OBSTRUCTION

REACTIONS (3)
  - Neuropathy peripheral [None]
  - Skin burning sensation [None]
  - Product substitution issue [None]
